FAERS Safety Report 20763427 (Version 2)
Quarter: 2022Q2

REPORT INFORMATION
  Report Type: Spontaneous
  Country: US (occurrence: US)
  Receive Date: 20220428
  Receipt Date: 20220517
  Transmission Date: 20220720
  Serious: Yes (Hospitalization)
  Sender: FDA-Public Use
  Company Number: US-PFIZER INC-202200494405

PATIENT
  Age: 32 Year
  Sex: Female

DRUGS (1)
  1. IBRANCE [Suspect]
     Active Substance: PALBOCICLIB
     Dosage: 125 MG

REACTIONS (7)
  - White blood cell count decreased [Unknown]
  - Vomiting [Unknown]
  - Pyrexia [Unknown]
  - Product dose omission issue [Unknown]
  - Diarrhoea [Unknown]
  - Influenza like illness [Unknown]
  - Pain [Unknown]
